FAERS Safety Report 18925276 (Version 2)
Quarter: 2021Q1

REPORT INFORMATION
  Report Type: Spontaneous
  Country: US (occurrence: US)
  Receive Date: 20210222
  Receipt Date: 20210302
  Transmission Date: 20210420
  Serious: Yes (Hospitalization, Other)
  Sender: FDA-Public Use
  Company Number: US-ALLERGAN-2034485US

PATIENT
  Sex: Male
  Weight: 92 kg

DRUGS (26)
  1. NORCO [Suspect]
     Active Substance: ACETAMINOPHEN\HYDROCODONE BITARTRATE
     Indication: SLEEP DISORDER
  2. VENCLEXTA [Suspect]
     Active Substance: VENETOCLAX
     Indication: CHRONIC LYMPHOCYTIC LEUKAEMIA
  3. BREO ELLIPTA [Concomitant]
     Active Substance: FLUTICASONE FUROATE\VILANTEROL TRIFENATATE
     Dosage: 1 PUFF (200?25 MCG/ DOSE) INTO THE LUNGS DAILY
  4. COREG [Concomitant]
     Active Substance: CARVEDILOL
     Dosage: 6.25 MG TWO TIMES A DAY WITH MEALS
     Route: 048
  5. PROSCAR [Concomitant]
     Active Substance: FINASTERIDE
     Dosage: 5 MG, QD
     Route: 048
  6. FOLVITE [Concomitant]
     Active Substance: FOLIC ACID
     Dosage: 1 MG, QD
     Route: 048
  7. XALATAN [Concomitant]
     Active Substance: LATANOPROST
     Dosage: 1 GTT, QHS
     Route: 047
  8. SINGULAIR [Concomitant]
     Active Substance: MONTELUKAST SODIUM
     Dosage: 10 MG, QHS
     Route: 048
  9. FLOMAX [Concomitant]
     Active Substance: TAMSULOSIN HYDROCHLORIDE
     Dosage: 2 CAPSULES (0.4 MG) ONCE DAILY WITH BREAKFAST
     Route: 048
  10. NORCO [Suspect]
     Active Substance: ACETAMINOPHEN\HYDROCODONE BITARTRATE
     Indication: BACK PAIN
     Dosage: 5/325MG Q6H PRN
     Route: 048
     Dates: start: 202004
  11. VENCLEXTA [Suspect]
     Active Substance: VENETOCLAX
     Indication: LYMPHOMA
     Dosage: 200 MG, QHS
     Route: 048
     Dates: start: 202001
  12. RITUXAN [Concomitant]
     Active Substance: RITUXIMAB
  13. OXYCODONE [Concomitant]
     Active Substance: OXYCODONE
  14. BUMEX [Concomitant]
     Active Substance: BUMETANIDE
     Dosage: 1 MG, QD
     Route: 048
  15. CABOZANTINIB [Concomitant]
     Active Substance: CABOZANTINIB
     Dosage: 60 MG, QD
     Route: 048
  16. XARELTO [Concomitant]
     Active Substance: RIVAROXABAN
     Indication: PULMONARY THROMBOSIS
     Dosage: 15 MG, QD
     Route: 048
  17. PFIZER?BIONTECH COVID?19 VACCINE [Concomitant]
     Active Substance: TOZINAMERAN
     Indication: COVID-19 IMMUNISATION
     Dosage: UNK
     Route: 030
  18. FLONASE [Concomitant]
     Active Substance: FLUTICASONE PROPIONATE
     Dosage: SPRAY BY NASAL ROUTE DAILY
  19. PACERONE [Concomitant]
     Active Substance: AMIODARONE HYDROCHLORIDE
     Dosage: 200 MG, QD
     Route: 048
  20. VITAMIN C [Concomitant]
     Active Substance: ASCORBIC ACID
     Dosage: 500 MG, QD
     Route: 048
  21. COZAAR [Concomitant]
     Active Substance: LOSARTAN POTASSIUM
     Dosage: 25 MG, QD
     Route: 048
  22. MAGIC MOUTHWASH [Concomitant]
     Active Substance: DIPHENHYDRAMINE HYDROCHLORIDE\LIDOCAINE HYDROCHLORIDE\NYSTATIN
     Dosage: 10 ML, Q6HR
     Route: 048
  23. SENOKOT?S [Concomitant]
     Active Substance: DOCUSATE SODIUM\SENNOSIDES
     Dosage: 1TABLET (8.6?50 MG)  2 TIMES DAILY
     Route: 048
  24. VITAMIN B12 [Concomitant]
     Active Substance: CYANOCOBALAMIN
  25. VITAMIN D [Concomitant]
     Active Substance: VITAMIN D NOS
  26. ZYRTEC [Concomitant]
     Active Substance: CETIRIZINE HYDROCHLORIDE
     Dosage: 10 MG DAILY AS NEEDED
     Route: 048

REACTIONS (24)
  - Feeling abnormal [Not Recovered/Not Resolved]
  - Cancer pain [Not Recovered/Not Resolved]
  - Rhinorrhoea [Unknown]
  - Blood pressure fluctuation [Not Recovered/Not Resolved]
  - Muscular weakness [Not Recovered/Not Resolved]
  - Aphonia [Unknown]
  - Dizziness [Not Recovered/Not Resolved]
  - Oral mucosal blistering [Unknown]
  - Weight decreased [Not Recovered/Not Resolved]
  - Fall [Recovered/Resolved]
  - Localised infection [Recovered/Resolved]
  - Swelling of eyelid [Unknown]
  - Sinus congestion [Unknown]
  - Decreased appetite [Not Recovered/Not Resolved]
  - Fatigue [Not Recovered/Not Resolved]
  - Asthenia [Unknown]
  - Hypotension [Unknown]
  - Renal cell carcinoma [Not Recovered/Not Resolved]
  - Cough [Not Recovered/Not Resolved]
  - Tongue discomfort [Not Recovered/Not Resolved]
  - Gait disturbance [Not Recovered/Not Resolved]
  - Balance disorder [Not Recovered/Not Resolved]
  - Limb injury [Recovered/Resolved]
  - Malaise [Unknown]

NARRATIVE: CASE EVENT DATE: 2020
